FAERS Safety Report 9642627 (Version 1)
Quarter: 2013Q4

REPORT INFORMATION
  Report Type: Spontaneous
  Country: US (occurrence: US)
  Receive Date: 20131024
  Receipt Date: 20131024
  Transmission Date: 20140711
  Serious: No
  Sender: FDA-Public Use
  Company Number: US-PFIZER INC-2013300859

PATIENT
  Sex: Female

DRUGS (14)
  1. LIPITOR [Suspect]
     Dosage: UNK
  2. ERYTHROMYCIN [Suspect]
     Dosage: UNK
  3. TETRACYCLINE HCL [Suspect]
     Dosage: UNK
  4. AVELOX [Suspect]
     Dosage: UNK
  5. BACTRIM [Suspect]
     Dosage: UNK
  6. CIPROFLOXACIN HYDROCHLORIDE [Suspect]
     Dosage: UNK
  7. CRESTOR [Suspect]
     Dosage: UNK
  8. FIORINAL [Suspect]
     Dosage: UNK
  9. INFLUENZA VIRUS VACCINE WHOLE [Suspect]
     Dosage: UNK
  10. LEVA-PAK [Suspect]
     Dosage: UNK
  11. LIVALO [Suspect]
     Dosage: UNK
  12. MIDRIN [Suspect]
     Dosage: UNK
  13. WELCHOL [Suspect]
     Dosage: UNK
  14. PRAVACHOL [Suspect]
     Dosage: UNK

REACTIONS (1)
  - Drug hypersensitivity [Unknown]
